FAERS Safety Report 19752295 (Version 1)
Quarter: 2021Q3

REPORT INFORMATION
  Report Type: Spontaneous
  Country: DE (occurrence: DE)
  Receive Date: 20210826
  Receipt Date: 20210826
  Transmission Date: 20211014
  Serious: Yes (Death, Hospitalization, Other)
  Sender: FDA-Public Use
  Company Number: DE-TAKEDA-2021TEU006245

PATIENT
  Age: 93 Year
  Sex: Female
  Weight: 42 kg

DRUGS (13)
  1. ADRENALIN [Suspect]
     Active Substance: EPINEPHRINE
     Indication: PRODUCT USED FOR UNKNOWN INDICATION
     Dosage: 10 MICROGRAM
     Route: 065
  2. UNACID (SULTAMICILLIN TOSILATE) [Suspect]
     Active Substance: SULTAMICILLIN TOSYLATE
     Indication: PRODUCT USED FOR UNKNOWN INDICATION
     Dosage: 6 GRAM, QD
     Route: 042
  3. ARTERENOL [Suspect]
     Active Substance: NOREPINEPHRINE HYDROCHLORIDE, (+/-)-
     Indication: PRODUCT USED FOR UNKNOWN INDICATION
     Dosage: UNK
     Route: 065
     Dates: start: 20190802
  4. SUPRARENIN [Suspect]
     Active Substance: EPINEPHRINE
     Indication: PRODUCT USED FOR UNKNOWN INDICATION
     Dosage: UNK
     Route: 065
     Dates: start: 20190802
  5. SUFENTA [Suspect]
     Active Substance: SUFENTANIL CITRATE
     Indication: PRODUCT USED FOR UNKNOWN INDICATION
     Dosage: UNK
     Route: 065
     Dates: start: 20190802
  6. PANTOZOL [Suspect]
     Active Substance: PANTOPRAZOLE SODIUM
     Indication: PRODUCT USED FOR UNKNOWN INDICATION
     Dosage: 80 MILLIGRAM, QD
     Route: 042
     Dates: start: 20190802
  7. AMIODARONE [Suspect]
     Active Substance: AMIODARONE
     Indication: PRODUCT USED FOR UNKNOWN INDICATION
     Dosage: UNK
     Route: 065
     Dates: start: 20190802
  8. SODIUM BICARBONATE. [Concomitant]
     Active Substance: SODIUM BICARBONATE
     Dosage: 400 MILLILITER, QD
  9. SODIUM CHLORIDE. [Concomitant]
     Active Substance: SODIUM CHLORIDE
     Dosage: UNK
  10. ATROPINE. [Suspect]
     Active Substance: ATROPINE
     Indication: PRODUCT USED FOR UNKNOWN INDICATION
     Dosage: UNK
     Route: 065
     Dates: start: 20190802
  11. KETAMIN [Suspect]
     Active Substance: KETAMINE
     Indication: ANAESTHESIA
     Dosage: UNK
     Route: 065
  12. TRANEXAMSAEURE ACCORD [Suspect]
     Active Substance: TRANEXAMIC ACID
     Indication: PRODUCT USED FOR UNKNOWN INDICATION
     Dosage: 1000 MILLIGRAM, QD
     Route: 042
     Dates: start: 20190802, end: 20190802
  13. RINGERS SOLUTION [Concomitant]
     Active Substance: CALCIUM CHLORIDE\POTASSIUM CHLORIDE\SODIUM CHLORIDE
     Dosage: 1500 MILLILITER, QD
     Route: 042
     Dates: start: 20190802

REACTIONS (18)
  - Acidosis [Fatal]
  - Coagulopathy [Fatal]
  - Haemorrhage [Fatal]
  - Anaemia [Fatal]
  - Hepatic failure [Fatal]
  - Cardiogenic shock [Fatal]
  - Acute respiratory failure [Fatal]
  - Myocardial infarction [Fatal]
  - Haematemesis [Fatal]
  - Abdominal distension [Fatal]
  - Aspiration [Fatal]
  - Cardiac arrest [Fatal]
  - Bundle branch block right [Fatal]
  - Ischaemia [Fatal]
  - Gastrointestinal haemorrhage [Fatal]
  - Ventricular fibrillation [Fatal]
  - Dysphonia [Fatal]
  - Toxicity to various agents [Fatal]

NARRATIVE: CASE EVENT DATE: 20190802
